FAERS Safety Report 26019457 (Version 1)
Quarter: 2025Q4

REPORT INFORMATION
  Report Type: Spontaneous
  Country: EU (occurrence: EU)
  Receive Date: 20251110
  Receipt Date: 20251110
  Transmission Date: 20260117
  Serious: Yes (Other)
  Sender: ACCORD
  Company Number: EU-Accord-511935

PATIENT
  Age: 42 Year
  Sex: Male

DRUGS (6)
  1. PACLITAXEL [Suspect]
     Active Substance: PACLITAXEL
     Indication: Testicular seminoma (pure) stage II
     Dosage: ON DAY 1, EVERY TWO WEEKS, RECEIVED SECOND CYCLE
  2. CYCLOPHOSPHAMIDE [Suspect]
     Active Substance: CYCLOPHOSPHAMIDE
     Indication: Testicular seminoma (pure) stage II
     Dosage: ON DAY 1, 2 AND 3; EVERY TWO WEEKS; RECEIVED 2ND CYCLE
  3. MESNA [Concomitant]
     Active Substance: MESNA
     Indication: Testicular seminoma (pure) stage II
     Dosage: ON DAY 1, 2 AND 3 EVERY TWO WEEKS, CORRESPONDING TO A TOTAL PERCENTAGE OF 150%
  4. MESNA [Concomitant]
     Active Substance: MESNA
     Indication: Extragonadal primary seminoma (pure)
     Dosage: ON DAY 1, 2 AND 3 EVERY TWO WEEKS, CORRESPONDING TO A TOTAL PERCENTAGE OF 150%
  5. PACLITAXEL [Suspect]
     Active Substance: PACLITAXEL
     Indication: Extragonadal primary seminoma (pure)
     Dosage: ON DAY 1, EVERY TWO WEEKS, RECEIVED SECOND CYCLE
  6. CYCLOPHOSPHAMIDE [Suspect]
     Active Substance: CYCLOPHOSPHAMIDE
     Indication: Extragonadal primary seminoma (pure)
     Dosage: ON DAY 1, 2 AND 3; EVERY TWO WEEKS; RECEIVED 2ND CYCLE

REACTIONS (2)
  - Pancytopenia [Recovering/Resolving]
  - Off label use [Unknown]
